FAERS Safety Report 5045889-0 (Version None)
Quarter: 2006Q3

REPORT INFORMATION
  Report Type: 
  Country: None (occurrence: None)
  Receive Date: 20060710
  Receipt Date: 20060313
  Transmission Date: 20061208
  Serious: Yes (Hospitalization, Other)
  Sender: FDA-Public Use
  Company Number: US-AVENTIS-200612419US

PATIENT
  Age: 50 Year
  Sex: Female

DRUGS (6)
  1. KETEK [Suspect]
     Indication: BRONCHITIS
     Dosage: DOSE: UNK
  2. ACIPHEX [Concomitant]
     Indication: GASTROOESOPHAGEAL REFLUX DISEASE
  3. HYDROXYZINE [Concomitant]
     Indication: URTICARIA
     Dosage: DOSE: UNK
  4. AMOXICILLIN [Concomitant]
     Dosage: DOSE: UNK
  5. OMNICEF [Concomitant]
     Dosage: DOSE: UNK
  6. AVELOX [Concomitant]
     Dosage: DOSE: UNK

REACTIONS (25)
  - ABDOMINAL PAIN UPPER [None]
  - ALANINE AMINOTRANSFERASE INCREASED [None]
  - ASCITES [None]
  - ASPARTATE AMINOTRANSFERASE INCREASED [None]
  - ASTHENIA [None]
  - BLOOD ALBUMIN DECREASED [None]
  - BLOOD ALKALINE PHOSPHATASE INCREASED [None]
  - BLOOD BILIRUBIN INCREASED [None]
  - BLOOD GLUCOSE INCREASED [None]
  - BRONCHITIS [None]
  - BUDD-CHIARI SYNDROME [None]
  - DIZZINESS [None]
  - GASTRITIS [None]
  - HAEMATOCRIT INCREASED [None]
  - HAEMOGLOBIN INCREASED [None]
  - HEPATIC VEIN OCCLUSION [None]
  - HEPATITIS [None]
  - HEPATOMEGALY [None]
  - NAUSEA [None]
  - OEDEMA PERIPHERAL [None]
  - PLEURAL EFFUSION [None]
  - PRURITUS [None]
  - PYREXIA [None]
  - TACHYCARDIA [None]
  - VOMITING [None]
